FAERS Safety Report 16178029 (Version 3)
Quarter: 2019Q2

REPORT INFORMATION
  Report Type: Spontaneous
  Country: US (occurrence: US)
  Receive Date: 20190410
  Receipt Date: 20190624
  Transmission Date: 20190711
  Serious: No
  Sender: FDA-Public Use
  Company Number: US-HTU-2018US018058

PATIENT
  Sex: Male

DRUGS (4)
  1. VALCHLOR [Suspect]
     Active Substance: MECHLORETHAMINE
     Dosage: UNK, ONCE DAILY
     Route: 061
  2. INTRON A [Suspect]
     Active Substance: INTERFERON ALFA-2B
  3. VALCHLOR [Suspect]
     Active Substance: MECHLORETHAMINE
     Indication: CUTANEOUS T-CELL LYMPHOMA
     Dosage: UNK, 3-5 NIGHTS PER WEEK
     Route: 061
     Dates: start: 20181116, end: 20190312
  4. ICHTAMOL [Concomitant]

REACTIONS (5)
  - Erythema [Recovered/Resolved]
  - Pain in extremity [Unknown]
  - Skin weeping [Recovered/Resolved]
  - Skin exfoliation [Unknown]
  - Hypersensitivity [Recovered/Resolved]
